FAERS Safety Report 7771382-8 (Version None)
Quarter: 2011Q3

REPORT INFORMATION
  Report Type: 
  Country: None (occurrence: None)
  Receive Date: 20110922
  Receipt Date: 20110912
  Transmission Date: 20111222
  Serious: Yes (Other)
  Sender: FDA-Public Use
  Company Number: US-JNJFOC-20110907796

PATIENT
  Sex: Female
  Weight: 36.29 kg

DRUGS (1)
  1. METHYLPHENIDATE HCL [Suspect]
     Indication: AUTISM
     Route: 048
     Dates: start: 20110808

REACTIONS (6)
  - SPEECH DISORDER [None]
  - APATHY [None]
  - DEPRESSED MOOD [None]
  - FRUSTRATION [None]
  - VISION BLURRED [None]
  - CRYING [None]
